FAERS Safety Report 16756056 (Version 2)
Quarter: 2019Q4

REPORT INFORMATION
  Report Type: Spontaneous
  Country: US (occurrence: US)
  Receive Date: 20190829
  Receipt Date: 20191106
  Transmission Date: 20200122
  Serious: No
  Sender: FDA-Public Use
  Company Number: US-BIOMARINAP-US-2019-125393

PATIENT

DRUGS (1)
  1. VIMIZIM [Suspect]
     Active Substance: ELOSULFASE ALFA
     Indication: MUCOPOLYSACCHARIDOSIS IV
     Dosage: 45 MILLIGRAM, QW
     Dates: start: 20190607

REACTIONS (5)
  - Pain in extremity [Unknown]
  - Urticaria [Recovering/Resolving]
  - Heart rate increased [Recovering/Resolving]
  - Pyrexia [Unknown]
  - Anxiety [Unknown]
